FAERS Safety Report 9143514 (Version 1)
Quarter: 2013Q1

REPORT INFORMATION
  Report Type: Spontaneous
  Country: US (occurrence: US)
  Receive Date: 20130306
  Receipt Date: 20130306
  Transmission Date: 20140127
  Serious: Yes (Death, Hospitalization)
  Sender: FDA-Public Use
  Company Number: US-JNJFOC-20130216859

PATIENT
  Age: 29 Year
  Sex: Female

DRUGS (6)
  1. XARELTO [Suspect]
     Indication: PULMONARY EMBOLISM
     Route: 048
  2. XARELTO [Suspect]
     Indication: PULMONARY EMBOLISM
     Route: 048
     Dates: start: 20130131
  3. INSULIN [Concomitant]
     Route: 065
  4. STATINS [Concomitant]
     Route: 065
  5. ANGIOTENSIN-CONVERTING ENZYME INHIBITORS [Concomitant]
     Route: 065
  6. LISINOPRIL [Concomitant]
     Route: 065

REACTIONS (1)
  - Cardiac arrest [Fatal]
